FAERS Safety Report 8446389-8 (Version None)
Quarter: 2012Q2

REPORT INFORMATION
  Report Type: 
  Country: None (occurrence: None)
  Receive Date: 20120618
  Receipt Date: 20120614
  Transmission Date: 20120825
  Serious: Yes (Life-Threatening, Hospitalization, Other)
  Sender: FDA-Public Use
  Company Number: AU-B.I. PHARMACEUTICALS,INC./RIDGEFIELD-2011-AU-02061AU

PATIENT
  Sex: Male
  Weight: 89 kg

DRUGS (11)
  1. ATORVASTATIN CALCIUM [Concomitant]
     Dosage: 80 MG
  2. RISEDRONATE SODIUM [Concomitant]
     Dosage: 5 MG
  3. ATENOLOL [Concomitant]
     Dosage: 12.5 MG
  4. SPIRIVA [Concomitant]
  5. PRADAXA [Suspect]
     Indication: ATRIAL FIBRILLATION
     Dosage: 220 MG
     Dates: start: 20110902, end: 20111006
  6. EUTROXSIG [Concomitant]
     Dosage: 100 MCG
  7. IRBESARTAN [Concomitant]
     Dosage: 150 MG
  8. VENTOLIN [Concomitant]
     Dosage: PRN
  9. EZETIMIBE [Concomitant]
     Dosage: 10 MG
  10. FLUTICASONE PROPIONATE/SALMETEROL [Concomitant]
     Dosage: 250/25; 2 PUFFS TWICE DAILY
  11. MYLANTA [Concomitant]

REACTIONS (7)
  - RENAL FAILURE ACUTE [None]
  - HAEMORRHAGE [None]
  - HAEMATURIA [None]
  - MALAISE [None]
  - RECURRENT CANCER [None]
  - DIARRHOEA [None]
  - DEHYDRATION [None]
